FAERS Safety Report 14733473 (Version 4)
Quarter: 2018Q4

REPORT INFORMATION
  Report Type: Report from Study
  Country: US (occurrence: US)
  Receive Date: 20180409
  Receipt Date: 20181119
  Transmission Date: 20190204
  Serious: No
  Sender: FDA-Public Use
  Company Number: PHEH2018US011780

PATIENT
  Sex: Male

DRUGS (1)
  1. ENTRESTO [Suspect]
     Active Substance: SACUBITRIL\VALSARTAN
     Indication: PRODUCT USED FOR UNKNOWN INDICATION
     Dosage: UNK
     Route: 048

REACTIONS (10)
  - Back disorder [Unknown]
  - Cardiovascular disorder [Unknown]
  - Pollakiuria [Unknown]
  - Fatigue [Unknown]
  - Stress [Unknown]
  - Fluid retention [Unknown]
  - Erectile dysfunction [Unknown]
  - Arthropathy [Unknown]
  - Chest pain [Unknown]
  - Fracture [Unknown]
